FAERS Safety Report 20229400 (Version 1)
Quarter: 2021Q4

REPORT INFORMATION
  Report Type: Spontaneous
  Country: FR (occurrence: FR)
  Receive Date: 20211225
  Receipt Date: 20211225
  Transmission Date: 20220303
  Serious: Yes (Other)
  Sender: FDA-Public Use
  Company Number: FR-NOVARTISPH-NVSC2021FR068400

PATIENT
  Age: 73 Year
  Sex: Female
  Weight: 42 kg

DRUGS (10)
  1. LETROZOLE [Suspect]
     Active Substance: LETROZOLE
     Indication: Product used for unknown indication
     Dosage: 2.5 MG, QD
     Route: 065
     Dates: start: 20191219
  2. IBRANCE [Suspect]
     Active Substance: PALBOCICLIB
     Indication: Breast cancer
     Dosage: 125 MG, DAILY CYCLIC 21 DAYS OUT OF 28
     Route: 065
     Dates: start: 20200117, end: 20200205
  3. IBRANCE [Suspect]
     Active Substance: PALBOCICLIB
     Dosage: 100 MG, DAILY CYCLIC 21 DAYS OUT OF 28
     Route: 065
     Dates: start: 20200217, end: 20200305
  4. IBRANCE [Suspect]
     Active Substance: PALBOCICLIB
     Dosage: 75 MG, DAILY CYCLIC 21 DAYS OUT OF 28
     Route: 065
     Dates: start: 20200306
  5. TRAMADOL [Concomitant]
     Active Substance: TRAMADOL
     Indication: Pain
     Dosage: UNK,PRN (UNK, AS NEEDED)
     Route: 048
     Dates: end: 20200824
  6. TRAMADOL [Concomitant]
     Active Substance: TRAMADOL
     Dosage: UNK, AS NEEDED
     Route: 048
     Dates: end: 20200824
  7. LOVENOX [Concomitant]
     Active Substance: ENOXAPARIN SODIUM
     Indication: Product used for unknown indication
     Dosage: UNK (UNK)
     Route: 048
     Dates: end: 20200824
  8. ACUPAN [Concomitant]
     Active Substance: NEFOPAM HYDROCHLORIDE
     Indication: Pain
     Dosage: UNK,PRN (UNK, AS NEEDED)
     Route: 048
     Dates: end: 20200824
  9. ACUPAN [Concomitant]
     Active Substance: NEFOPAM HYDROCHLORIDE
     Dosage: UNK, AS NEEDED
     Route: 048
     Dates: end: 20200824
  10. CALTRATE [Concomitant]
     Active Substance: CALCIUM CARBONATE
     Indication: Osteoporosis
     Dosage: UNK (UNK)
     Route: 048
     Dates: end: 20200824

REACTIONS (4)
  - Thrombocytopenia [Not Recovered/Not Resolved]
  - Neutropenia [Recovered/Resolved]
  - Anaemia [Recovered/Resolved]
  - Nail toxicity [Recovered/Resolved]

NARRATIVE: CASE EVENT DATE: 20200118
